FAERS Safety Report 6843287-8 (Version None)
Quarter: 2010Q3

REPORT INFORMATION
  Report Type: 
  Country: None (occurrence: None)
  Receive Date: 20100715
  Receipt Date: 20100707
  Transmission Date: 20110219
  Serious: No
  Sender: FDA-Public Use
  Company Number: US-BIOGENIDEC-2010BI023443

PATIENT
  Age: 58 Year
  Sex: Female

DRUGS (1)
  1. TYSABRI [Suspect]
     Indication: MULTIPLE SCLEROSIS
     Route: 042
     Dates: start: 20091118

REACTIONS (6)
  - BRONCHITIS [None]
  - COUGH [None]
  - EYE INFECTION [None]
  - INFECTION SUSCEPTIBILITY INCREASED [None]
  - ORAL CANDIDIASIS [None]
  - PHARYNGITIS [None]
